FAERS Safety Report 25595216 (Version 5)
Quarter: 2025Q3

REPORT INFORMATION
  Report Type: Report from Study
  Country: US (occurrence: US)
  Receive Date: 20250723
  Receipt Date: 20250922
  Transmission Date: 20251021
  Serious: Yes (Hospitalization, Other)
  Sender: ACADIA PHARMACEUTICALS
  Company Number: US-ACADIA PHARMACEUTICALS INC.-ACA-2025-TRF-008460

PATIENT
  Age: 34 Year
  Sex: Male
  Weight: 46.5 kg

DRUGS (32)
  1. DAYBUE [Suspect]
     Active Substance: TROFINETIDE
     Indication: Rett syndrome
     Dosage: 25 MILLILITER, BID
     Dates: start: 20230717, end: 20250716
  2. DAYBUE [Suspect]
     Active Substance: TROFINETIDE
     Dosage: 25 MILLILITER, BID
     Dates: start: 20250717
  3. TOBRAMYCIN [Concomitant]
     Active Substance: TOBRAMYCIN
     Dosage: 5 MILLILITER, BID, 60 MG/ML
  4. KEPPRA [Concomitant]
     Active Substance: LEVETIRACETAM
     Dosage: 15 MILLILITER, BID, 100 MG/ML
  5. LEVOCARNITINE [Concomitant]
     Active Substance: LEVOCARNITINE
     Dosage: 1000 MILLIGRAM, TID
     Route: 048
  6. MIRALAX [Concomitant]
     Active Substance: POLYETHYLENE GLYCOL 3350
     Dosage: DISSOLVE AND DRINK 1 CAPFUL (17G) OF POWDER IN 4 TO 8 OUNCES OF LIQUID ONCE DAILY (QD), ORAL POWDER
     Route: 048
  7. NALOXONE [Concomitant]
     Active Substance: NALOXONE
     Route: 045
  8. VIMPAT [Concomitant]
     Active Substance: LACOSAMIDE
     Indication: Epilepsy
     Dosage: 10 MILLILITER, BID, 10 MG/ML, THOUGH G-TUBE/PEG
  9. SENNA [Concomitant]
     Active Substance: SENNOSIDES
     Indication: Constipation
     Dosage: 5 MILLILITER, BID PRN, 8.8 MG/5 ML
  10. DIAZEPAM [Concomitant]
     Active Substance: DIAZEPAM
     Indication: Seizure
     Route: 054
  11. DIAZEPAM [Concomitant]
     Active Substance: DIAZEPAM
     Indication: Dental care
  12. ATROPINE OPHTHALMIC [Concomitant]
     Indication: Salivary hypersecretion
     Route: 060
  13. GEMTESA [Concomitant]
     Active Substance: VIBEGRON
     Dosage: 75 MILLIGRAM, QD
  14. CALCIUM\VITAMIN D [Concomitant]
     Active Substance: CALCIUM\VITAMIN D
     Dosage: CALCIUM (AS CARBONATE)-VITAMIN D (200 INTL UNITS), GROUND 1 TAB INTO POWDER
  15. FERROUS SULFATE [Concomitant]
     Active Substance: FERROUS SULFATE
     Indication: Iron deficiency anaemia
  16. EPINEPHRINE [Concomitant]
     Active Substance: EPINEPHRINE
     Route: 030
  17. OMEPRAZOLE [Concomitant]
     Active Substance: OMEPRAZOLE
     Dosage: 40 MILLIGRAM, QD
     Route: 048
  18. IBUPROFEN [Concomitant]
     Active Substance: IBUPROFEN
     Indication: Pyrexia
     Route: 048
  19. NYSTATIN [Concomitant]
     Active Substance: NYSTATIN
     Indication: Fungal infection
     Dosage: 100,000 UNITS/G TOPICAL POWDER, 1 APPLICATION, BID
     Route: 061
  20. KETOCONAZOLE [Concomitant]
     Active Substance: KETOCONAZOLE
     Indication: Fungal skin infection
     Dosage: 1 APPLICATION, BID
     Route: 061
  21. MAXITROL [DEXAMETHASONE;NEOMYCIN SULFATE;POLYMYXIN B SULFATE] [Concomitant]
     Dosage: 3.5 MG-10,000 UNITS-1 MG/G OPHTHALMIC OINTMENT, 1 APPLICATION, EYE-BOTH, TID
  22. ACETAMINOPHEN [Concomitant]
     Active Substance: ACETAMINOPHEN
     Indication: Pain
     Route: 048
  23. ACETAMINOPHEN [Concomitant]
     Active Substance: ACETAMINOPHEN
     Indication: Pyrexia
  24. LOPERAMIDE [Concomitant]
     Active Substance: LOPERAMIDE
     Dosage: 2 DOSAGE FORM, BID, NOT TO EXCEED 8 CAPSULES, OR 16 MG, IN 24 HOURS
  25. ALBUTEROL [Concomitant]
     Active Substance: ALBUTEROL
  26. ZINC OXIDE [Concomitant]
     Active Substance: ZINC OXIDE
     Indication: Injury
     Dosage: 1 APPLICATION, QID, APPLY DAILY TO AFFECTED AREA ON THE RIGHT FLANK
     Route: 061
  27. PROTOPIC [Concomitant]
     Active Substance: TACROLIMUS
     Indication: Injury
     Dosage: 1 APPLICATION, BID
     Route: 061
  28. FLUTICASONE [Concomitant]
     Active Substance: FLUTICASONE
     Dosage: 50 MICROGRAM, QD, USE 1 TO 2 SPRAYS IN EACH NOSTRIL EVERY DAY
  29. DIPHENHYDRAMINE [Concomitant]
     Active Substance: DIPHENHYDRAMINE
     Indication: Hypersensitivity
  30. CETIRIZINE [Concomitant]
     Active Substance: CETIRIZINE HYDROCHLORIDE
     Indication: Hypersensitivity
     Dosage: 1 MG/ML, 10 MILLILITER, QD, GIVE 10CC VIA PEG TUBE EVERY DAY
  31. LOTRISONE [Concomitant]
     Active Substance: BETAMETHASONE DIPROPIONATE\CLOTRIMAZOLE
     Dosage: 1%-0.05%, 1 APPLICATION, BID
     Route: 061
  32. SODIUM CHLORIDE [Concomitant]
     Active Substance: SODIUM CHLORIDE

REACTIONS (5)
  - Nephrolithiasis [Recovered/Resolved]
  - Urosepsis [Unknown]
  - Urinary tract infection [Recovered/Resolved]
  - Underdose [Unknown]
  - Product dose omission issue [Recovered/Resolved]

NARRATIVE: CASE EVENT DATE: 20250715
